FAERS Safety Report 5010574-8 (Version None)
Quarter: 2006Q2

REPORT INFORMATION
  Report Type: 
  Country: None (occurrence: None)
  Receive Date: 20060524
  Receipt Date: 20060524
  Transmission Date: 20061013
  Serious: Yes (Other)
  Sender: FDA-Public Use
  Company Number: None

PATIENT
  Age: 47 Year
  Sex: Female
  Weight: 58.9676 kg

DRUGS (2)
  1. PREDNISONE TAB [Suspect]
     Indication: VESTIBULAR NEURONITIS
     Dosage: 20 MG 2X DAILY PO
     Route: 048
     Dates: start: 20060504, end: 20060505
  2. PREDNISONE TAB [Suspect]
     Indication: VESTIBULAR NEURONITIS
     Dosage: 20 MG 2X DAILY PO
     Route: 048
     Dates: start: 20060509, end: 20060509

REACTIONS (2)
  - BLINDNESS UNILATERAL [None]
  - OPTIC NEURITIS [None]
